FAERS Safety Report 17835702 (Version 2)
Quarter: 2020Q3

REPORT INFORMATION
  Report Type: Report from Study
  Country: None (occurrence: US)
  Receive Date: 20200528
  Receipt Date: 20200702
  Transmission Date: 20201103
  Serious: Yes (Hospitalization, Other)
  Sender: FDA-Public Use
  Company Number: US-ABBVIE-20K-163-3419644-00

PATIENT
  Age: 69 Year
  Sex: Male

DRUGS (1)
  1. HUMIRA [Suspect]
     Active Substance: ADALIMUMAB
     Indication: COLITIS ULCERATIVE
     Dosage: CITRATE FREE
     Route: 058

REACTIONS (8)
  - Small intestinal obstruction [Recovering/Resolving]
  - Diarrhoea [Unknown]
  - Gastrooesophageal reflux disease [Unknown]
  - Anxiety [Recovering/Resolving]
  - Vomiting [Unknown]
  - Hernia [Recovering/Resolving]
  - Back pain [Unknown]
  - Abdominal hernia obstructive [Recovering/Resolving]

NARRATIVE: CASE EVENT DATE: 2020
